FAERS Safety Report 7751070-4 (Version None)
Quarter: 2011Q3

REPORT INFORMATION
  Report Type: 
  Country: None (occurrence: None)
  Receive Date: 20110914
  Receipt Date: 20110913
  Transmission Date: 20111222
  Serious: No
  Sender: FDA-Public Use
  Company Number: US-TEVA-300346USA

PATIENT
  Sex: Female

DRUGS (2)
  1. NICOTINE [Concomitant]
  2. COPAXONE [Suspect]
     Indication: MULTIPLE SCLEROSIS
     Dosage: 20 MILLIGRAM;
     Route: 058

REACTIONS (3)
  - SCAR [None]
  - INJECTION SITE EXTRAVASATION [None]
  - LIPOATROPHY [None]
